FAERS Safety Report 11441319 (Version 1)
Quarter: 2015Q3

REPORT INFORMATION
  Report Type: Spontaneous
  Country: US (occurrence: US)
  Receive Date: 20150821
  Receipt Date: 20150821
  Transmission Date: 20151125
  Serious: No
  Sender: FDA-Public Use
  Company Number: US-ELI_LILLY_AND_COMPANY-US200801000328

PATIENT
  Age: 59 Year
  Sex: Female

DRUGS (5)
  1. CYMBALTA [Suspect]
     Active Substance: DULOXETINE HYDROCHLORIDE
     Indication: ANXIETY
     Dosage: 20 MG, UNK
  2. XANAX [Concomitant]
     Active Substance: ALPRAZOLAM
  3. PROZAC [Suspect]
     Active Substance: FLUOXETINE HYDROCHLORIDE
     Indication: DEPRESSION
     Dosage: 1 D/F, UNK
     Dates: start: 1990
  4. VALIUM [Concomitant]
     Active Substance: DIAZEPAM
  5. ESTROGEN NOS [Concomitant]
     Active Substance: ESTROGENS

REACTIONS (3)
  - Snoring [Not Recovered/Not Resolved]
  - Fatigue [Not Recovered/Not Resolved]
  - Depression [Unknown]

NARRATIVE: CASE EVENT DATE: 1990
